FAERS Safety Report 21348576 (Version 1)
Quarter: 2022Q3

REPORT INFORMATION
  Report Type: Spontaneous
  Country: US (occurrence: None)
  Receive Date: 20220916
  Receipt Date: 20220916
  Transmission Date: 20221027
  Serious: Yes (Hospitalization)
  Sender: FDA-Public Use
  Company Number: None

PATIENT
  Age: 62 Year
  Sex: Female

DRUGS (2)
  1. HUMIRA [Suspect]
     Active Substance: ADALIMUMAB
     Indication: Rheumatoid arthritis
     Dosage: 40 MG/0.4ML  SUBCUTANEOUS?INJECT 1 PEN UNDER THE SKIN (SUBCUTANEOUS INJECTION) EVERY 14 DAYS?
     Route: 058
     Dates: start: 20210701
  2. ENBREL SRCLK [Concomitant]

REACTIONS (1)
  - Sepsis [None]

NARRATIVE: CASE EVENT DATE: 20220905
